FAERS Safety Report 8535580-8 (Version None)
Quarter: 2012Q3

REPORT INFORMATION
  Report Type: 
  Country: None (occurrence: None)
  Receive Date: 20120725
  Receipt Date: 20120713
  Transmission Date: 20120928
  Serious: Yes (Other)
  Sender: FDA-Public Use
  Company Number: US-009507513-1207USA005538

PATIENT

DRUGS (3)
  1. RIBASPHERE [Concomitant]
     Dosage: UNK
     Dates: start: 20111114
  2. PEGASYS [Concomitant]
  3. VICTRELIS [Suspect]
     Dosage: UNK
     Dates: start: 20111114

REACTIONS (1)
  - CONVULSION [None]
